FAERS Safety Report 7605255-8 (Version None)
Quarter: 2011Q3

REPORT INFORMATION
  Report Type: 
  Country: None (occurrence: None)
  Receive Date: 20110713
  Receipt Date: 20110705
  Transmission Date: 20111222
  Serious: Yes (Hospitalization, Other)
  Sender: FDA-Public Use
  Company Number: US-ABBOTT-11P-163-0731199-00

PATIENT
  Sex: Male
  Weight: 63.56 kg

DRUGS (6)
  1. UNKNOWN PAIN MEDICATION [Concomitant]
     Indication: PAIN
  2. ASPIRIN [Concomitant]
     Indication: CARDIOVASCULAR DISORDER
  3. FOSAMAX [Concomitant]
     Indication: OSTEOARTHRITIS
  4. PLAVIX [Concomitant]
     Indication: CARDIOVASCULAR DISORDER
  5. HUMIRA [Suspect]
     Indication: ANKYLOSING SPONDYLITIS
  6. HUMIRA [Suspect]
     Indication: RHEUMATOID ARTHRITIS
     Dates: start: 20060801, end: 20101001

REACTIONS (2)
  - KIDNEY INFECTION [None]
  - NEPHROLITHIASIS [None]
